FAERS Safety Report 5127600-8 (Version None)
Quarter: 2006Q4

REPORT INFORMATION
  Report Type: 
  Country: None (occurrence: None)
  Receive Date: 20061011
  Receipt Date: 20060926
  Transmission Date: 20070319
  Serious: Yes (Life-Threatening)
  Sender: FDA-Public Use
  Company Number: 230411

PATIENT
  Age: 33 Year
  Sex: Female

DRUGS (1)
  1. RITUXAN [Suspect]
     Indication: SYSTEMIC LUPUS ERYTHEMATOSUS
     Dosage: 1000 MG, QD, INTRAVENOUS
     Route: 042
     Dates: start: 20051202, end: 20051216

REACTIONS (1)
  - PNEUMONIA LEGIONELLA [None]
